FAERS Safety Report 4863325-1 (Version None)
Quarter: 2005Q4

REPORT INFORMATION
  Report Type: 
  Country: None (occurrence: None)
  Receive Date: 20051219
  Receipt Date: 20051206
  Transmission Date: 20060501
  Serious: Yes (Death, Hospitalization, Other)
  Sender: FDA-Public Use
  Company Number: A-US2005-11064

PATIENT
  Age: 66 Year
  Sex: Female

DRUGS (24)
  1. TRACLEER [Suspect]
     Indication: PULMONARY HYPERTENSION
     Dosage: 125 + 62.5 MG, BID, ORAL
     Route: 048
     Dates: start: 20020225, end: 20020325
  2. TRACLEER [Suspect]
     Indication: PULMONARY HYPERTENSION
     Dosage: 125 + 62.5 MG, BID, ORAL
     Route: 048
     Dates: start: 20020326
  3. VIAGRA [Concomitant]
  4. VENTAVIS [Concomitant]
  5. INTERFERONA GAMMA (INTERFERON GAMMA) [Concomitant]
  6. VITAMIN B12 [Concomitant]
  7. TEMAZEPAM [Concomitant]
  8. CALCIUM MAGNESIUN ZINC (CALCIUM, MAGNESIUM, ZINC) [Concomitant]
  9. LEVOXYL [Concomitant]
  10. REMODULIN [Concomitant]
  11. IRON SULFATE (FRERROUS SULFATE) [Concomitant]
  12. TENORMIN [Concomitant]
  13. ZANTAC [Concomitant]
  14. ALDACTONE [Concomitant]
  15. METOLAZONE [Concomitant]
  16. BUMEX [Concomitant]
  17. EPOGEN [Concomitant]
  18. TESSALON [Concomitant]
  19. PRILOSEC [Concomitant]
  20. POTASSIUM (POTASSIUM) [Concomitant]
  21. LASIX [Concomitant]
  22. ASPIRIN [Concomitant]
  23. LOSARTAN POTASSIUM [Concomitant]
  24. OXYGEN (OXYGEN) [Concomitant]

REACTIONS (24)
  - ACIDOSIS [None]
  - ACUTE RESPIRATORY FAILURE [None]
  - ASPARTATE AMINOTRANSFERASE INCREASED [None]
  - ATRIAL FIBRILLATION [None]
  - BLOOD BICARBONATE DECREASED [None]
  - BLOOD BILIRUBIN INCREASED [None]
  - BLOOD PH DECREASED [None]
  - CARDIAC FAILURE CONGESTIVE [None]
  - CARDIAC HYPERTROPHY [None]
  - DILATATION ATRIAL [None]
  - DYSPNOEA [None]
  - FLUID OVERLOAD [None]
  - HAEMATOCRIT DECREASED [None]
  - HYPERTROPHIC CARDIOMYOPATHY [None]
  - HYPOTENSION [None]
  - HYPOXIA [None]
  - MITRAL VALVE INCOMPETENCE [None]
  - PERICARDIAL EFFUSION [None]
  - PLATELET COUNT DECREASED [None]
  - PULMONARY OEDEMA [None]
  - PULMONARY VALVE INCOMPETENCE [None]
  - RIGHT VENTRICULAR FAILURE [None]
  - TRICUSPID VALVE INCOMPETENCE [None]
  - WHITE BLOOD CELL COUNT INCREASED [None]
